FAERS Safety Report 16402021 (Version 1)
Quarter: 2019Q2

REPORT INFORMATION
  Report Type: Spontaneous
  Country: NL (occurrence: NL)
  Receive Date: 20190607
  Receipt Date: 20190607
  Transmission Date: 20190711
  Serious: Yes (Congenital Anomaly)
  Sender: FDA-Public Use
  Company Number: NL-ABBVIE-19K-114-2810962-00

PATIENT
  Sex: Male
  Weight: 2.8 kg

DRUGS (1)
  1. HUMIRA [Suspect]
     Active Substance: ADALIMUMAB
     Indication: PSORIASIS
     Dosage: 1 MAAL PER 2 WEEK 40 MILIGRAM
     Route: 058

REACTIONS (2)
  - Maternal exposure during pregnancy [Unknown]
  - Polydactyly [Unknown]
